FAERS Safety Report 13687140 (Version 1)
Quarter: 2017Q2

REPORT INFORMATION
  Report Type: Spontaneous
  Country: US (occurrence: US)
  Receive Date: 20170623
  Receipt Date: 20170623
  Transmission Date: 20170830
  Serious: Yes (Life-Threatening)
  Sender: FDA-Public Use
  Company Number: US-B. BRAUN MEDICAL INC.-2022466

PATIENT
  Age: 74 Year
  Sex: Female

DRUGS (12)
  1. POTASSIUM CHLORIDE. [Concomitant]
     Active Substance: POTASSIUM CHLORIDE
  2. DEXTROSE INJECTIONS USP 0264-7510-00 0264-7510-20 [Suspect]
     Active Substance: DEXTROSE
     Route: 042
  3. SPIRONOLACTONE. [Interacting]
     Active Substance: SPIRONOLACTONE
  4. CARVEDILOL. [Concomitant]
     Active Substance: CARVEDILOL
  5. NPH INSULIN [Concomitant]
     Active Substance: INSULIN BEEF
  6. SIMVASTATIN. [Concomitant]
     Active Substance: SIMVASTATIN
  7. METOLAZONE. [Concomitant]
     Active Substance: METOLAZONE
  8. ASPIRIN. [Concomitant]
     Active Substance: ASPIRIN
  9. INSULIN [Concomitant]
     Active Substance: INSULIN NOS
  10. SPIRONOLACTONE. [Concomitant]
     Active Substance: SPIRONOLACTONE
  11. PAROXETINE. [Concomitant]
     Active Substance: PAROXETINE
  12. BUMETANIDE. [Concomitant]
     Active Substance: BUMETANIDE

REACTIONS (3)
  - Blood aldosterone abnormal [Recovered/Resolved]
  - Hyperkalaemia [Recovered/Resolved]
  - Cardiac arrest [Recovered/Resolved]
